FAERS Safety Report 25930369 (Version 1)
Quarter: 2025Q4

REPORT INFORMATION
  Report Type: Spontaneous
  Country: EU (occurrence: EU)
  Receive Date: 20251016
  Receipt Date: 20251016
  Transmission Date: 20260117
  Serious: Yes (Hospitalization, Other)
  Sender: CHEPLAPHARM
  Company Number: None

PATIENT
  Age: 60 Year
  Sex: Male

DRUGS (3)
  1. CAPECITABINE [Suspect]
     Active Substance: CAPECITABINE
     Indication: Pharyngeal cancer metastatic
     Dosage: DAILY DOSE: 3300 MILLIGRAM
     Route: 048
     Dates: start: 20250218, end: 20250304
  2. CAPECITABINE [Suspect]
     Active Substance: CAPECITABINE
     Indication: Pharyngeal cancer metastatic
     Dosage: DAILY DOSE: 94.4 MILLIGRAM
     Route: 048
     Dates: start: 20250218, end: 20250324
  3. CAPECITABINE [Suspect]
     Active Substance: CAPECITABINE
     Indication: Pharyngeal cancer metastatic
     Dosage: DAILY DOSE: 3300 MILLIGRAM
     Route: 048
     Dates: start: 20250311, end: 20250324

REACTIONS (8)
  - Colitis [Recovered/Resolved]
  - Intestinal perforation [Recovered/Resolved]
  - Syncope [Unknown]
  - Pneumoperitoneum [Unknown]
  - Coronavirus infection [Unknown]
  - Oral herpes [Unknown]
  - Herpes simplex [Unknown]
  - Off label use [Recovered/Resolved]

NARRATIVE: CASE EVENT DATE: 20250101
